FAERS Safety Report 25298430 (Version 1)
Quarter: 2025Q2

REPORT INFORMATION
  Report Type: Spontaneous
  Country: PL (occurrence: PL)
  Receive Date: 20250512
  Receipt Date: 20250512
  Transmission Date: 20250716
  Serious: Yes (Other)
  Sender: AUROBINDO
  Company Number: PL-002147023-NVSC2025PL066746

PATIENT
  Age: 39 Year
  Sex: Male

DRUGS (3)
  1. AZACITIDINE [Suspect]
     Active Substance: AZACITIDINE
     Indication: Primary myelofibrosis
     Route: 065
     Dates: start: 20211105
  2. ETOPOSIDE [Suspect]
     Active Substance: ETOPOSIDE
     Indication: Primary myelofibrosis
     Route: 065
     Dates: start: 20211118
  3. RUXOLITINIB [Suspect]
     Active Substance: RUXOLITINIB
     Indication: Primary myelofibrosis
     Route: 065
     Dates: start: 20211105

REACTIONS (7)
  - Primary myelofibrosis [Unknown]
  - Malignant neoplasm progression [Unknown]
  - Cytogenetic abnormality [Unknown]
  - Hepatosplenomegaly [Unknown]
  - Laboratory test abnormal [Unknown]
  - Skin disorder [Unknown]
  - Off label use [Unknown]
